FAERS Safety Report 18961283 (Version 2)
Quarter: 2021Q1

REPORT INFORMATION
  Report Type: Spontaneous
  Country: US (occurrence: US)
  Receive Date: 20210303
  Receipt Date: 20210303
  Transmission Date: 20210420
  Serious: Yes (Hospitalization)
  Sender: FDA-Public Use
  Company Number: US-CELGENEUS-USA-20210300038

PATIENT
  Age: 77 Year
  Sex: Female
  Weight: 56.7 kg

DRUGS (2)
  1. GEMCITABINE. [Suspect]
     Active Substance: GEMCITABINE
     Indication: ADENOCARCINOMA PANCREAS
     Dosage: CYCLE 1
     Route: 065
     Dates: start: 20201111, end: 20201111
  2. ABRAXANE [Suspect]
     Active Substance: PACLITAXEL
     Indication: ADENOCARCINOMA PANCREAS
     Route: 041
     Dates: start: 20201111, end: 20201111

REACTIONS (3)
  - Sepsis [Unknown]
  - Ascites [Unknown]
  - Pneumonia [Unknown]

NARRATIVE: CASE EVENT DATE: 20201113
